FAERS Safety Report 8012172-0 (Version None)
Quarter: 2011Q4

REPORT INFORMATION
  Report Type: 
  Country: None (occurrence: None)
  Receive Date: 20111228
  Receipt Date: 20111222
  Transmission Date: 20120403
  Serious: Yes (Hospitalization)
  Sender: FDA-Public Use
  Company Number: FR-ABBOTT-11P-056-0878237-00

PATIENT
  Sex: Male

DRUGS (6)
  1. ZOLPIDEM [Concomitant]
     Indication: PRODUCT USED FOR UNKNOWN INDICATION
  2. PLAVIX [Concomitant]
     Indication: PRODUCT USED FOR UNKNOWN INDICATION
  3. NAFTIDROFURYL [Concomitant]
     Indication: PRODUCT USED FOR UNKNOWN INDICATION
  4. ZOCOR [Concomitant]
     Indication: PRODUCT USED FOR UNKNOWN INDICATION
  5. NICARDIPINE HCL [Concomitant]
     Indication: PRODUCT USED FOR UNKNOWN INDICATION
  6. HUMIRA [Suspect]
     Indication: PSORIASIS
     Dosage: FIRST DOSE 80MG, THEN 40MG EVERY 2 WEEKS
     Route: 058
     Dates: start: 20111025, end: 20111109

REACTIONS (2)
  - ERYTHRODERMIC PSORIASIS [None]
  - PSORIASIS [None]
